FAERS Safety Report 9865813 (Version 2)
Quarter: 2014Q1

REPORT INFORMATION
  Report Type: Spontaneous
  Country: US (occurrence: US)
  Receive Date: 20140203
  Receipt Date: 20140203
  Transmission Date: 20141002
  Serious: No
  Sender: FDA-Public Use
  Company Number: US-ALLERGAN-1310886US

PATIENT
  Age: 79 Year
  Sex: Female

DRUGS (2)
  1. RESTASIS [Suspect]
     Indication: DRY EYE
     Dosage: 2 GTT, BID
     Route: 047
     Dates: start: 201307
  2. RESTASIS [Suspect]
     Indication: EYE PRURITUS

REACTIONS (5)
  - Abnormal sensation in eye [Recovered/Resolved]
  - Abnormal sensation in eye [Recovered/Resolved]
  - Eyelid sensory disorder [Recovered/Resolved]
  - Eyelid sensory disorder [Not Recovered/Not Resolved]
  - Eye pruritus [Recovered/Resolved]
